FAERS Safety Report 6433166-2 (Version None)
Quarter: 2009Q4

REPORT INFORMATION
  Report Type: 
  Country: None (occurrence: None)
  Receive Date: 20091109
  Receipt Date: 20091103
  Transmission Date: 20100525
  Serious: Yes (Death)
  Sender: FDA-Public Use
  Company Number: PHEH2009US14985

PATIENT
  Sex: Female
  Weight: 51.701 kg

DRUGS (1)
  1. DIOVAN HCT [Suspect]
     Indication: HYPERTENSION

REACTIONS (2)
  - CELLULITIS [None]
  - OSTEOMYELITIS [None]
